FAERS Safety Report 6931853-0 (Version None)
Quarter: 2010Q3

REPORT INFORMATION
  Report Type: 
  Country: None (occurrence: None)
  Receive Date: 20100819
  Receipt Date: 20100810
  Transmission Date: 20110219
  Serious: Yes (Other)
  Sender: FDA-Public Use
  Company Number: JP-PFIZER INC-2010096921

PATIENT
  Age: 77 Year
  Sex: Male

DRUGS (7)
  1. VIBRAMYCIN [Suspect]
     Dosage: 100 MG, 1X/DAY, AFTER SUPPER
     Route: 048
     Dates: start: 20100709
  2. TAMSULOSIN HYDROCHLORIDE [Concomitant]
     Dosage: UNK
  3. ALLOPURINOL [Concomitant]
     Dosage: UNK
  4. ASPIRIN [Concomitant]
     Dosage: UNK
  5. PANALDINE [Concomitant]
     Dosage: UNK
  6. DILTIAZEM HYDROCHLORIDE [Concomitant]
     Dosage: UNK
  7. PURSENNID [Concomitant]
     Dosage: UNK

REACTIONS (2)
  - HYPOAESTHESIA [None]
  - IMMOBILE [None]
